FAERS Safety Report 6436795-5 (Version None)
Quarter: 2009Q4

REPORT INFORMATION
  Report Type: 
  Country: None (occurrence: None)
  Receive Date: 20091109
  Receipt Date: 20091027
  Transmission Date: 20100525
  Serious: Yes (Death)
  Sender: FDA-Public Use
  Company Number: 2009AL006879

PATIENT
  Age: 27 Year
  Sex: Male

DRUGS (4)
  1. FLUOXETINE [Suspect]
  2. ZYPREXA [Concomitant]
  3. LEXAPRO [Concomitant]
  4. KEMADRIN [Concomitant]

REACTIONS (3)
  - DRUG TOXICITY [None]
  - FAECAL INCONTINENCE [None]
  - SKIN DISORDER [None]
